FAERS Safety Report 17830296 (Version 1)
Quarter: 2020Q2

REPORT INFORMATION
  Report Type: Spontaneous
  Country: DK (occurrence: DK)
  Receive Date: 20200527
  Receipt Date: 20200527
  Transmission Date: 20200714
  Serious: Yes (Other)
  Sender: FDA-Public Use
  Company Number: NVSC2020DK144002

PATIENT
  Age: 21 Year
  Sex: Female

DRUGS (2)
  1. TEGRETOL [Suspect]
     Active Substance: CARBAMAZEPINE
     Indication: TRIGEMINAL NEURALGIA
     Dosage: 400 MG, QD
     Route: 048
     Dates: start: 20181129, end: 20181215
  2. PREDNISONE ^DAK^ [Suspect]
     Active Substance: PREDNISONE
     Indication: ANAPHYLACTIC SHOCK
     Dosage: 37.5 MG, QD
     Route: 048
     Dates: start: 20181214, end: 20181230

REACTIONS (1)
  - Diabetes mellitus [Recovered/Resolved]

NARRATIVE: CASE EVENT DATE: 201812
